FAERS Safety Report 16779135 (Version 2)
Quarter: 2019Q4

REPORT INFORMATION
  Report Type: Spontaneous
  Country: US (occurrence: US)
  Receive Date: 20190906
  Receipt Date: 20191106
  Transmission Date: 20200122
  Serious: Yes (Hospitalization, Other)
  Sender: FDA-Public Use
  Company Number: US-ASTRAZENECA-2019SF24997

PATIENT
  Sex: Female

DRUGS (15)
  1. TOPROL XL [Suspect]
     Active Substance: METOPROLOL SUCCINATE
     Route: 048
  2. MAGNESIUM [Concomitant]
     Active Substance: MAGNESIUM
  3. BRILINTA [Suspect]
     Active Substance: TICAGRELOR
     Indication: CARDIAC DEATH
     Route: 048
     Dates: start: 20180422
  4. ASPIRIN. [Concomitant]
     Active Substance: ASPIRIN
  5. TRULICITY [Concomitant]
     Active Substance: DULAGLUTIDE
  6. CALCIUM [Concomitant]
     Active Substance: CALCIUM
  7. GABAPENTIN. [Concomitant]
     Active Substance: GABAPENTIN
     Dosage: 200.0MG UNKNOWN
  8. NEXIUM [Suspect]
     Active Substance: ESOMEPRAZOLE MAGNESIUM
     Indication: DYSPEPSIA
     Dosage: 20.0MG UNKNOWN
     Route: 048
     Dates: start: 2017
  9. LANTUS [Concomitant]
     Active Substance: INSULIN GLARGINE
     Dosage: 17USP UNITS AT NIGHT
  10. PENTOXIFYLLINE. [Concomitant]
     Active Substance: PENTOXIFYLLINE
  11. VITAMIN D3 [Concomitant]
     Active Substance: CHOLECALCIFEROL
  12. VITAMIN E [Concomitant]
     Active Substance: .ALPHA.-TOCOPHEROL
  13. FOLIC ACID. [Concomitant]
     Active Substance: FOLIC ACID
     Dosage: 100.0MG UNKNOWN
  14. TRICOR [Concomitant]
     Active Substance: FENOFIBRATE
     Dosage: 145.0MG UNKNOWN
  15. LIPITOR [Concomitant]
     Active Substance: ATORVASTATIN CALCIUM
     Dosage: 40.0MG UNKNOWN

REACTIONS (3)
  - Iron deficiency anaemia [Unknown]
  - Coronary artery occlusion [Unknown]
  - Intentional product misuse [Unknown]
